FAERS Safety Report 22264696 (Version 4)
Quarter: 2023Q4

REPORT INFORMATION
  Report Type: Spontaneous
  Country: US (occurrence: US)
  Receive Date: 20230428
  Receipt Date: 20231030
  Transmission Date: 20240110
  Serious: Yes (Death, Life-Threatening, Hospitalization, Other)
  Sender: FDA-Public Use
  Company Number: US-BRISTOL-MYERS SQUIBB COMPANY-2023-059751

PATIENT
  Age: 87 Year
  Sex: Female
  Weight: 45.36 kg

DRUGS (12)
  1. ELIQUIS [Suspect]
     Active Substance: APIXABAN
     Indication: Atrial fibrillation
     Route: 048
     Dates: start: 20221215
  2. LASIX [Concomitant]
     Active Substance: FUROSEMIDE
     Indication: Left ventricular failure
     Route: 048
  3. LASIX [Concomitant]
     Active Substance: FUROSEMIDE
     Indication: Swelling
  4. LISINOPRIL [Concomitant]
     Active Substance: LISINOPRIL
     Indication: Hypertension
     Dosage: FREQUENCY: ONCE A DAY IN EVENING
     Route: 048
  5. LISINOPRIL [Concomitant]
     Active Substance: LISINOPRIL
     Indication: Left ventricular failure
  6. LIPITOR [Concomitant]
     Active Substance: ATORVASTATIN CALCIUM
     Indication: Hyperlipidaemia
     Dosage: FREQUENCY: ONCE A DAY AT BEDTIME
     Route: 048
  7. METOPROLOL TARTRATE [Concomitant]
     Active Substance: METOPROLOL TARTRATE
     Indication: Hypertension
     Dosage: FREQUENCY: TWICE A DAY WITH BREAKFAST AND DINNER
     Route: 048
  8. METOPROLOL TARTRATE [Concomitant]
     Active Substance: METOPROLOL TARTRATE
     Indication: Atrial fibrillation
  9. METOPROLOL TARTRATE [Concomitant]
     Active Substance: METOPROLOL TARTRATE
     Indication: Left ventricular failure
  10. PRILOSEC [Concomitant]
     Active Substance: OMEPRAZOLE MAGNESIUM
     Indication: Gastrooesophageal reflux disease
     Dosage: PRILOSEC OTC 20 MG TABLET DELAYED RELEASE, 1 TABLET ORALLY ONCE A DAY
     Route: 048
  11. POTASSIUM CHLORIDE [Concomitant]
     Active Substance: POTASSIUM CHLORIDE
     Indication: Chronic obstructive pulmonary disease
     Dosage: POTASSIUM CHLORIDE ER 10 MEQ TABLET EXTENDED RELEASE 1 TABLET ORALLY ONCE A DAY WITH FOOD
     Route: 048
  12. POTASSIUM CHLORIDE [Concomitant]
     Active Substance: POTASSIUM CHLORIDE
     Indication: Left ventricular failure

REACTIONS (3)
  - Acute respiratory failure [Fatal]
  - Left ventricular failure [Fatal]
  - Hypoxia [Fatal]

NARRATIVE: CASE EVENT DATE: 20230316
